FAERS Safety Report 25030795 (Version 1)
Quarter: 2025Q1

REPORT INFORMATION
  Report Type: Spontaneous
  Country: IN (occurrence: IN)
  Receive Date: 20250303
  Receipt Date: 20250303
  Transmission Date: 20250409
  Serious: Yes (Other)
  Sender: CHEPLAPHARM
  Company Number: None

PATIENT
  Age: 43 Year
  Sex: Male

DRUGS (2)
  1. CAPECITABINE [Suspect]
     Active Substance: CAPECITABINE
     Indication: Anal cancer
     Dosage: DAILY CAPECITABINE
  2. MITOMYCIN C [Suspect]
     Active Substance: MITOMYCIN
     Indication: Anal cancer

REACTIONS (2)
  - Febrile neutropenia [Unknown]
  - Mucormycosis [Recovered/Resolved]
